FAERS Safety Report 13839500 (Version 1)
Quarter: 2017Q3

REPORT INFORMATION
  Report Type: Spontaneous
  Country: US (occurrence: US)
  Receive Date: 20170805
  Receipt Date: 20170805
  Transmission Date: 20171127
  Serious: No
  Sender: FDA-Public Use
  Company Number: None

PATIENT
  Age: 47 Year
  Sex: Male

DRUGS (29)
  1. HYDROCORTISONE. [Concomitant]
     Active Substance: HYDROCORTISONE
  2. LANSOPRAZOLE. [Concomitant]
     Active Substance: LANSOPRAZOLE
  3. MAGNESIUM OXIDE. [Concomitant]
     Active Substance: MAGNESIUM OXIDE
  4. OXYCODONE [Concomitant]
     Active Substance: OXYCODONE
  5. POTASSIUM CHLORIDE. [Concomitant]
     Active Substance: POTASSIUM CHLORIDE
  6. FUROSEMIDE. [Concomitant]
     Active Substance: FUROSEMIDE
  7. NITROGLYCERIN. [Concomitant]
     Active Substance: NITROGLYCERIN
  8. ABACAVIR. [Concomitant]
     Active Substance: ABACAVIR
  9. ALLOPURINOL. [Concomitant]
     Active Substance: ALLOPURINOL
  10. CARVEDILOL. [Concomitant]
     Active Substance: CARVEDILOL
  11. LEVOTHYROXINE. [Concomitant]
     Active Substance: LEVOTHYROXINE
  12. MILRINONE [Concomitant]
     Active Substance: MILRINONE
  13. PREDNISONE. [Concomitant]
     Active Substance: PREDNISONE
  14. WARFARIN [Concomitant]
     Active Substance: WARFARIN
  15. PHYTONADIONE. [Concomitant]
     Active Substance: PHYTONADIONE
  16. ARIPIPRAZOLE. [Concomitant]
     Active Substance: ARIPIPRAZOLE
  17. CALCIUM GLUCONATE. [Concomitant]
     Active Substance: CALCIUM GLUCONATE
  18. RAMIPRIL. [Concomitant]
     Active Substance: RAMIPRIL
  19. CALCIUM CARBONATE. [Concomitant]
     Active Substance: CALCIUM CARBONATE
  20. DIGOXIN. [Concomitant]
     Active Substance: DIGOXIN
  21. ESCITALOPRAM [Concomitant]
     Active Substance: ESCITALOPRAM OXALATE
  22. MEXILETINE [Concomitant]
     Active Substance: MEXILETINE
  23. MORPHINE [Concomitant]
     Active Substance: MORPHINE
  24. NYSTATIN. [Concomitant]
     Active Substance: NYSTATIN
  25. METHIMAZOLE. [Concomitant]
     Active Substance: METHIMAZOLE
  26. AMIODARONE [Suspect]
     Active Substance: AMIODARONE
     Indication: ATRIAL FIBRILLATION
     Route: 048
     Dates: start: 20131101, end: 20150831
  27. CHOLECALCIFEROL [Concomitant]
     Active Substance: CHOLECALCIFEROL
  28. CLONAZEPAM. [Concomitant]
     Active Substance: CLONAZEPAM
  29. TORSEMIDE. [Concomitant]
     Active Substance: TORSEMIDE

REACTIONS (3)
  - Pulmonary toxicity [None]
  - Hyperthyroidism [None]
  - Cardiac output decreased [None]

NARRATIVE: CASE EVENT DATE: 20170119
